FAERS Safety Report 20714411 (Version 5)
Quarter: 2022Q2

REPORT INFORMATION
  Report Type: Report from Study
  Country: US (occurrence: US)
  Receive Date: 20220415
  Receipt Date: 20220622
  Transmission Date: 20220720
  Serious: Yes (Hospitalization, Other)
  Sender: FDA-Public Use
  Company Number: US-BRISTOL-MYERS SQUIBB COMPANY-2022-014390

PATIENT
  Age: 69 Year
  Sex: Male
  Weight: 80.00 kg

DRUGS (6)
  1. NIVOLUMAB [Suspect]
     Active Substance: NIVOLUMAB
     Indication: Transitional cell carcinoma
     Route: 042
     Dates: start: 20220119, end: 20220315
  2. NIVOLUMAB [Suspect]
     Active Substance: NIVOLUMAB
     Route: 042
     Dates: start: 20220315
  3. KYN-175 [Suspect]
     Active Substance: KYN-175
     Indication: Transitional cell carcinoma
     Dosage: QD
     Dates: start: 20220119, end: 20220315
  4. KYN-175 [Suspect]
     Active Substance: KYN-175
     Dosage: QD
     Route: 048
     Dates: start: 20220316
  5. FAMOTIDINE [Concomitant]
     Active Substance: FAMOTIDINE
     Dates: start: 20220215
  6. FAMOTIDINE [Concomitant]
     Active Substance: FAMOTIDINE
     Indication: Product used for unknown indication

REACTIONS (1)
  - Immune-mediated arthritis [Recovered/Resolved with Sequelae]

NARRATIVE: CASE EVENT DATE: 20220315
